FAERS Safety Report 5075737-4 (Version None)
Quarter: 2006Q3

REPORT INFORMATION
  Report Type: 
  Country: None (occurrence: None)
  Receive Date: 20060809
  Receipt Date: 20051219
  Transmission Date: 20061208
  Serious: No
  Sender: FDA-Public Use
  Company Number: US-AMGEN-KDL162280

PATIENT
  Sex: Male
  Weight: 76.3 kg

DRUGS (9)
  1. PROCRIT [Suspect]
     Indication: RENAL FAILURE CHRONIC
     Dates: start: 20050714
  2. ALTACE [Concomitant]
     Dates: start: 20010101
  3. BUMETANIDE [Concomitant]
     Dates: start: 20010101
  4. DIPHENHYDRAMINE HCL [Concomitant]
  5. DIOVAN [Concomitant]
     Dates: start: 20010101
  6. LABETALOL HCL [Concomitant]
     Dates: start: 20010101
  7. NORVASC [Concomitant]
     Dates: start: 20010101
  8. DIGOXIN [Concomitant]
     Dates: start: 20010101
  9. SINGULAIR [Concomitant]

REACTIONS (6)
  - BLOOD PRESSURE DECREASED [None]
  - CONSTIPATION [None]
  - DIZZINESS [None]
  - LACRIMATION INCREASED [None]
  - POLLAKIURIA [None]
  - THERAPEUTIC RESPONSE DECREASED [None]
